FAERS Safety Report 5026379-8 (Version None)
Quarter: 2006Q2

REPORT INFORMATION
  Report Type: 
  Country: None (occurrence: None)
  Receive Date: 20060613
  Receipt Date: 20060613
  Transmission Date: 20061013
  Serious: Yes (Other)
  Sender: FDA-Public Use
  Company Number: None

PATIENT
  Sex: Male
  Weight: 70.3075 kg

DRUGS (3)
  1. ARICEPT [Suspect]
     Indication: AMNESIA
     Dosage: 1 PILL DAILY MOUTH
     Dates: start: 20060529
  2. ARICEPT [Suspect]
     Indication: AMNESIA
     Dosage: 1 PILL DAILY MOUTH
     Dates: start: 20060530
  3. ARICEPT [Suspect]
     Indication: AMNESIA
     Dosage: 1 PILL DAILY MOUTH
     Dates: start: 20060531

REACTIONS (2)
  - CONVULSION [None]
  - TREMOR [None]
